FAERS Safety Report 15986982 (Version 2)
Quarter: 2019Q1

REPORT INFORMATION
  Report Type: Spontaneous
  Country: US (occurrence: US)
  Receive Date: 20190220
  Receipt Date: 20190304
  Transmission Date: 20190418
  Serious: Yes (Other)
  Sender: FDA-Public Use
  Company Number: US-ASTRAZENECA-2018SF21688

PATIENT
  Sex: Female
  Weight: 94.4 kg

DRUGS (18)
  1. PROTONIX [Suspect]
     Active Substance: PANTOPRAZOLE SODIUM
     Dosage: GENERIC
     Route: 065
     Dates: start: 20130409
  2. CLOPIDOGREL [Concomitant]
     Active Substance: CLOPIDOGREL BISULFATE
  3. ASPIRIN. [Concomitant]
     Active Substance: ASPIRIN
  4. PROTONIX [Suspect]
     Active Substance: PANTOPRAZOLE SODIUM
     Dosage: GENERIC
     Route: 065
     Dates: start: 20150629
  5. PROTONIX [Suspect]
     Active Substance: PANTOPRAZOLE SODIUM
     Dosage: GENERIC
     Route: 065
     Dates: start: 20120710
  6. FIBERCON [Concomitant]
     Active Substance: CALCIUM POLYCARBOPHIL
  7. SPIRIVA [Concomitant]
     Active Substance: TIOTROPIUM BROMIDE MONOHYDRATE
  8. NEXIUM [Suspect]
     Active Substance: ESOMEPRAZOLE MAGNESIUM
     Route: 048
     Dates: start: 20050101, end: 20120101
  9. NIFEDIPINE. [Concomitant]
     Active Substance: NIFEDIPINE
  10. BACLOFEN. [Concomitant]
     Active Substance: BACLOFEN
  11. PROTONIX [Suspect]
     Active Substance: PANTOPRAZOLE SODIUM
     Dosage: GENERIC
     Route: 065
     Dates: start: 20120101, end: 20140101
  12. ALPRAZOLAM. [Concomitant]
     Active Substance: ALPRAZOLAM
  13. QUESTRAN [Concomitant]
     Active Substance: CHOLESTYRAMINE
  14. MULTAQ [Concomitant]
     Active Substance: DRONEDARONE
  15. ELIQUIS [Concomitant]
     Active Substance: APIXABAN
  16. LOPERAMIDE [Concomitant]
     Active Substance: LOPERAMIDE
  17. IRBESARTAN. [Concomitant]
     Active Substance: IRBESARTAN
  18. PRAVASTATIN. [Concomitant]
     Active Substance: PRAVASTATIN

REACTIONS (2)
  - Renal injury [Unknown]
  - Chronic kidney disease [Unknown]
